FAERS Safety Report 17509584 (Version 8)
Quarter: 2021Q1

REPORT INFORMATION
  Report Type: Report from Study
  Country: GB (occurrence: GB)
  Receive Date: 20200306
  Receipt Date: 20210309
  Transmission Date: 20210419
  Serious: Yes (Death, Hospitalization)
  Sender: FDA-Public Use
  Company Number: GB-ROCHE-2561310

PATIENT
  Age: 78 Year
  Sex: Male
  Weight: 68 kg

DRUGS (14)
  1. GEMCITABINE. [Suspect]
     Active Substance: GEMCITABINE
     Indication: DIFFUSE LARGE B-CELL LYMPHOMA
     Dosage: ON 18/FEB/2020, MOST RECENT DOSE OF GEMCTABINE (1800 MG) WAS GIVEN.?DOSE: 1000 MG EVERY 14 DAYS
     Route: 041
     Dates: start: 20191031
  2. G?CSF [Suspect]
     Active Substance: GRANULOCYTE COLONY-STIMULATING FACTOR NOS
     Indication: DIFFUSE LARGE B-CELL LYMPHOMA
     Dosage: ON 22/FEB/2020, MOST RECENT DOSE OF G?CSF (30 MG/UNITS) WAS GIVEN.
     Route: 065
     Dates: start: 20191104
  3. BISOPROLOL [Concomitant]
     Active Substance: BISOPROLOL
     Route: 048
     Dates: end: 20200413
  4. OXALIPLATIN. [Suspect]
     Active Substance: OXALIPLATIN
     Indication: DIFFUSE LARGE B-CELL LYMPHOMA
     Dosage: ON 18/FEB/2020, MOST RECENT DOSE OF OXALIPLATIN (180 MG) WAS GIVEN.?DOSE: 100 MG EVERY 14 DAYS
     Route: 041
     Dates: start: 20191031
  5. PIPERACILLIN AND TAZOBACTAM [Concomitant]
     Active Substance: PIPERACILLIN SODIUM\TAZOBACTAM SODIUM
     Route: 042
  6. ATEZOLIZUMAB. [Suspect]
     Active Substance: ATEZOLIZUMAB
     Indication: DIFFUSE LARGE B-CELL LYMPHOMA
     Dosage: ON 18/FEB/2020, MOST RECENT DOSE OF ATEZOLIZUMAB (840 MG) WAS GIVEN.
     Route: 041
     Dates: start: 20191114
  7. RAMIPRIL. [Concomitant]
     Active Substance: RAMIPRIL
     Route: 048
  8. FINASTERIDE. [Concomitant]
     Active Substance: FINASTERIDE
     Route: 048
     Dates: end: 20200413
  9. RITUXIMAB. [Suspect]
     Active Substance: RITUXIMAB
     Indication: DIFFUSE LARGE B-CELL LYMPHOMA
     Dosage: ON 18/FEB/2020, MOST RECENT DOSE OF RITUXIMAB (1400 MG) WAS GIVEN.
     Route: 042
     Dates: start: 20191031
  10. RITUXIMAB. [Suspect]
     Active Substance: RITUXIMAB
     Indication: DIFFUSE LARGE B-CELL LYMPHOMA
     Dosage: ON 18/FEB/2020, MOST RECENT DOSE OF RITUXIMAB (1400 MG) WAS GIVEN.
     Route: 058
     Dates: start: 20191031
  11. SIMVASTATIN. [Concomitant]
     Active Substance: SIMVASTATIN
     Route: 048
     Dates: end: 20200413
  12. OMEPRAZOLE. [Concomitant]
     Active Substance: OMEPRAZOLE
     Route: 048
     Dates: end: 20200413
  13. BISOPROLOL [Concomitant]
     Active Substance: BISOPROLOL
     Route: 048
  14. FINASTERIDE. [Concomitant]
     Active Substance: FINASTERIDE
     Route: 048

REACTIONS (2)
  - Disease progression [Fatal]
  - Decreased appetite [Recovered/Resolved]

NARRATIVE: CASE EVENT DATE: 20200227
